FAERS Safety Report 12539684 (Version 1)
Quarter: 2016Q3

REPORT INFORMATION
  Report Type: Spontaneous
  Country: US (occurrence: None)
  Receive Date: 20160707
  Receipt Date: 20160707
  Transmission Date: 20161109
  Serious: Yes (Hospitalization, Other)
  Sender: FDA-Public Use
  Company Number: None

PATIENT
  Age: 13 Day
  Weight: 2.59 kg

DRUGS (1)
  1. FINGOLIMOD [Suspect]
     Active Substance: FINGOLIMOD
     Indication: MULTIPLE SCLEROSIS
     Route: 048

REACTIONS (4)
  - Atrial septal defect [None]
  - T-lymphocyte count decreased [None]
  - Combined immunodeficiency [None]
  - Maternal drugs affecting foetus [None]

NARRATIVE: CASE EVENT DATE: 20160302
